FAERS Safety Report 9639061 (Version 2)
Quarter: 2013Q4

REPORT INFORMATION
  Report Type: Spontaneous
  Country: PL (occurrence: None)
  Receive Date: 20131018
  Receipt Date: 20131025
  Transmission Date: 20140711
  Serious: Yes (Other)
  Sender: FDA-Public Use
  Company Number: 1950811

PATIENT
  Age: 43 Year
  Sex: Female
  Weight: 90 kg

DRUGS (5)
  1. DOCETAXEL [Suspect]
     Indication: PRODUCT USED FOR UNKNOWN INDICATION
     Dates: start: 20130812, end: 20130812
  2. DOXORUBICIN [Concomitant]
  3. DEXMETHASONE [Concomitant]
  4. ONDANSETRON [Concomitant]
  5. METOCLOPRAMIDE [Concomitant]

REACTIONS (2)
  - Anxiety [None]
  - Dyspnoea [None]
